FAERS Safety Report 10216854 (Version 1)
Quarter: 2014Q2

REPORT INFORMATION
  Report Type: Spontaneous
  Country: DE (occurrence: DE)
  Receive Date: 20140604
  Receipt Date: 20140604
  Transmission Date: 20141212
  Serious: Yes (Death, Congenital Anomaly)
  Sender: FDA-Public Use
  Company Number: DE-WATSON-2014-11514

PATIENT
  Sex: Male

DRUGS (3)
  1. CITALOPRAM (UNKNOWN) [Suspect]
     Indication: DEPRESSION
     Dosage: 20 MG, DAILY
     Route: 064
     Dates: start: 20121212, end: 20130421
  2. MIRTAZAPINE (UNKNOWN) [Suspect]
     Indication: DEPRESSION
     Dosage: 1 MG, DAILY
     Route: 064
  3. FOLIC ACID [Concomitant]
     Indication: PROPHYLAXIS OF NEURAL TUBE DEFECT
     Dosage: UNK
     Route: 064
     Dates: end: 20130320

REACTIONS (4)
  - Limb reduction defect [Fatal]
  - Asplenia [Fatal]
  - Foetal exposure during pregnancy [Fatal]
  - Abortion late [Fatal]
